FAERS Safety Report 8504530-2 (Version None)
Quarter: 2012Q3

REPORT INFORMATION
  Report Type: 
  Country: None (occurrence: None)
  Receive Date: 20120711
  Receipt Date: 20120703
  Transmission Date: 20120928
  Serious: Yes (Other)
  Sender: FDA-Public Use
  Company Number: US-ROCHE-1083842

PATIENT
  Sex: Female

DRUGS (1)
  1. CELLCEPT [Suspect]
     Indication: PRODUCT USED FOR UNKNOWN INDICATION

REACTIONS (6)
  - ROAD TRAFFIC ACCIDENT [None]
  - DYSPHAGIA [None]
  - SCLERODERMA [None]
  - CARDIAC ARREST [None]
  - WEIGHT DECREASED [None]
  - TRAUMATIC LUNG INJURY [None]
